FAERS Safety Report 5296222-0 (Version None)
Quarter: 2007Q2

REPORT INFORMATION
  Report Type: 
  Country: None (occurrence: None)
  Receive Date: 20070413
  Receipt Date: 20070410
  Transmission Date: 20071010
  Serious: Yes (Death)
  Sender: FDA-Public Use
  Company Number: JP-JPN-A200701679

PATIENT
  Age: 66 Year

DRUGS (3)
  1. PAXIL [Suspect]
     Indication: DEPRESSION
     Route: 048
  2. SOLANAX [Concomitant]
     Route: 048
  3. ROHYPNOL [Concomitant]
     Route: 065

REACTIONS (1)
  - DEATH [None]
